FAERS Safety Report 17911527 (Version 1)
Quarter: 2020Q2

REPORT INFORMATION
  Report Type: Spontaneous
  Country: GB (occurrence: GB)
  Receive Date: 20200618
  Receipt Date: 20200618
  Transmission Date: 20200714
  Serious: Yes (Hospitalization, Other)
  Sender: FDA-Public Use
  Company Number: GB-TEVA-2020-GB-1490397

PATIENT
  Age: 74 Year
  Sex: Female
  Weight: 74 kg

DRUGS (9)
  1. ACETYLSALICYLIC ACID [Concomitant]
     Active Substance: ASPIRIN
     Indication: ANGINA PECTORIS
  2. ATORVASTATIN [Suspect]
     Active Substance: ATORVASTATIN
     Indication: ANGINA PECTORIS
     Dosage: 40 MG
     Route: 048
     Dates: start: 20190527, end: 20200515
  3. AMITRIPTYLINE [Concomitant]
     Active Substance: AMITRIPTYLINE
     Indication: SCIATICA
  4. BISOPROLOL [Concomitant]
     Active Substance: BISOPROLOL
     Indication: ANGINA PECTORIS
  5. LANSOPRAZOLE. [Concomitant]
     Active Substance: LANSOPRAZOLE
     Indication: HIATUS HERNIA
  6. CANDESARTAN. [Concomitant]
     Active Substance: CANDESARTAN
     Indication: BLOOD PRESSURE MEASUREMENT
  7. ZINC. [Concomitant]
     Active Substance: ZINC
     Indication: MINERAL SUPPLEMENTATION
  8. VOLTAROL [Concomitant]
     Active Substance: DICLOFENAC SODIUM
     Indication: ARTHRITIS
  9. ASCORBIC ACID. [Concomitant]
     Active Substance: ASCORBIC ACID
     Indication: VITAMIN SUPPLEMENTATION

REACTIONS (10)
  - Acute kidney injury [Unknown]
  - Asthenia [Unknown]
  - Nausea [Unknown]
  - Ocular icterus [Unknown]
  - Myalgia [Unknown]
  - Rhabdomyolysis [Recovering/Resolving]
  - Chromaturia [Unknown]
  - Fatigue [Unknown]
  - Jaundice [Recovering/Resolving]
  - Yellow skin [Unknown]

NARRATIVE: CASE EVENT DATE: 20200413
